FAERS Safety Report 18122326 (Version 1)
Quarter: 2020Q3

REPORT INFORMATION
  Report Type: Spontaneous
  Country: ES (occurrence: ES)
  Receive Date: 20200807
  Receipt Date: 20200807
  Transmission Date: 20201103
  Serious: Yes (Other)
  Sender: FDA-Public Use
  Company Number: ES-AUROBINDO-AUR-APL-2020-038244

PATIENT
  Age: 2 Year
  Sex: Male

DRUGS (15)
  1. LEVETIRACETAM. [Suspect]
     Active Substance: LEVETIRACETAM
     Dosage: 50 MILLIGRAM/KILOGRAM/DAY
     Route: 065
  2. LACOSAMIDE. [Concomitant]
     Active Substance: LACOSAMIDE
     Dosage: 5 MILLIGRAM/KILOGRAM/DAY
     Route: 065
  3. LEVETIRACETAM. [Suspect]
     Active Substance: LEVETIRACETAM
     Dosage: 30 MILLIGRAM/KILOGRAM/DAY
     Route: 065
  4. PHENYTOIN. [Suspect]
     Active Substance: PHENYTOIN
     Indication: PARTIAL SEIZURES
     Dosage: 15 MILLIGRAM/KILOGRAM/DAY
     Route: 065
  5. CARBAMAZEPINE. [Suspect]
     Active Substance: CARBAMAZEPINE
     Dosage: 20 MILLIGRAM/KILOGRAM/DAY
     Route: 065
  6. CARBAMAZEPINE. [Suspect]
     Active Substance: CARBAMAZEPINE
     Dosage: 15 MILLIGRAM/KILOGRAM/8H
     Route: 065
  7. LACOSAMIDE. [Concomitant]
     Active Substance: LACOSAMIDE
     Indication: PARTIAL SEIZURES
     Dosage: 1.7 MILLIGRAM/KILOGRAM/DAY
     Route: 065
  8. LACOSAMIDE. [Concomitant]
     Active Substance: LACOSAMIDE
     Dosage: 3.7 MILLIGRAM/KILOGRAM/DAY
     Route: 065
  9. LEVETIRACETAM. [Suspect]
     Active Substance: LEVETIRACETAM
     Indication: PARTIAL SEIZURES
     Dosage: 20 MILLIGRAM/KILOGRAM/DAY
     Route: 065
  10. CARBAMAZEPINE. [Suspect]
     Active Substance: CARBAMAZEPINE
     Dosage: 30 MILLIGRAM/KILOGRAM/DAY
     Route: 065
  11. VALPROIC ACID. [Concomitant]
     Active Substance: VALPROIC ACID
     Indication: PARTIAL SEIZURES
     Dosage: 5 MILLIGRAM/KILOGRAM/HOUR
     Route: 065
  12. LACOSAMIDE. [Concomitant]
     Active Substance: LACOSAMIDE
     Dosage: 3 MILLIGRAM/KILOGRAM/DAY
     Route: 065
  13. LEVETIRACETAM. [Suspect]
     Active Substance: LEVETIRACETAM
     Dosage: 40 MILLIGRAM/KILOGRAM/DAY
     Route: 065
  14. CARBAMAZEPINE. [Suspect]
     Active Substance: CARBAMAZEPINE
     Indication: PARTIAL SEIZURES
     Dosage: 10 MILLIGRAM/KILOGRAM/12H
     Route: 065
  15. CARBAMAZEPINE. [Suspect]
     Active Substance: CARBAMAZEPINE
     Dosage: 35 MILLIGRAM/KILOGRAM/DAY
     Route: 065

REACTIONS (1)
  - Drug ineffective [Unknown]
